FAERS Safety Report 9228481 (Version 4)
Quarter: 2014Q3

REPORT INFORMATION
  Report Type: Report from Study
  Country: FR (occurrence: FR)
  Receive Date: 20130412
  Receipt Date: 20140926
  Transmission Date: 20150326
  Serious: Yes (Hospitalization, Other)
  Sender: FDA-Public Use
  Company Number: FR-UCBSA-072636

PATIENT
  Age: 76 Year
  Sex: Male
  Weight: 90 kg

DRUGS (6)
  1. METHOTREXATE (METHOTREXATE SODIUM) [Concomitant]
     Active Substance: METHOTREXATE SODIUM
     Indication: RHEUMATOID ARTHRITIS
     Dosage: 20 MG, WEEKLY (QW)
     Route: 048
     Dates: start: 201111
  2. SPECIAFORLDINE [Concomitant]
     Indication: RHEUMATOID ARTHRITIS
     Dosage: 20 MG, WEEKLY (QW)
     Route: 048
     Dates: start: 201111
  3. CORTANCYL [Concomitant]
     Active Substance: PREDNISONE
     Dosage: 3 MG, ONCE DAILY (QD)
     Route: 048
     Dates: start: 201211, end: 20130813
  4. CERTOLIZUMAB PEGOL RA [Suspect]
     Active Substance: CERTOLIZUMAB PEGOL
     Indication: RHEUMATOID ARTHRITIS
     Dosage: 200 MG, EV 2 WEEKS(QOW)
     Route: 058
     Dates: start: 20121020, end: 20130531
  5. CORTANCYL [Concomitant]
     Active Substance: PREDNISONE
     Indication: RHEUMATOID ARTHRITIS
     Dosage: 10 MG, ONCE DAILY (QD)
     Route: 048
     Dates: start: 20111120
  6. CERTOLIZUMAB PEGOL RA [Suspect]
     Active Substance: CERTOLIZUMAB PEGOL
     Dosage: 400 MG EVERY TWO WEEKS THEN 200 MG EVERY TWO WEEKS
     Route: 058
     Dates: start: 20120817, end: 20120920

REACTIONS (5)
  - Pleuropericarditis [Recovered/Resolved]
  - Psoriasis [Recovered/Resolved]
  - Herpes zoster [Recovered/Resolved]
  - Chlamydial infection [Unknown]
  - Inappropriate schedule of drug administration [Unknown]

NARRATIVE: CASE EVENT DATE: 2012
